FAERS Safety Report 7898506-6 (Version None)
Quarter: 2011Q4

REPORT INFORMATION
  Report Type: 
  Country: None (occurrence: None)
  Receive Date: 20111107
  Receipt Date: 20111026
  Transmission Date: 20120403
  Serious: Yes (Hospitalization, Other)
  Sender: FDA-Public Use
  Company Number: MX-SANOFI-AVENTIS-2011SA070836

PATIENT
  Age: 69 Year
  Sex: Female
  Weight: 48 kg

DRUGS (3)
  1. CHLOROQUINE DIPHOSPHATE [Concomitant]
     Route: 048
     Dates: start: 20110401, end: 20110401
  2. SULINDAC [Concomitant]
     Route: 048
     Dates: start: 20110401
  3. ARAVA [Suspect]
     Indication: RHEUMATOID ARTHRITIS
     Route: 048
     Dates: start: 20010101

REACTIONS (7)
  - CERVIX CARCINOMA [None]
  - VAGINAL HAEMORRHAGE [None]
  - WEIGHT DECREASED [None]
  - VISUAL ACUITY REDUCED [None]
  - VISION BLURRED [None]
  - DIARRHOEA [None]
  - NAUSEA [None]
